FAERS Safety Report 5199051-1 (Version None)
Quarter: 2007Q1

REPORT INFORMATION
  Report Type: 
  Country: None (occurrence: None)
  Receive Date: 20070104
  Receipt Date: 20061220
  Transmission Date: 20070707
  Serious: Yes (Congenital Anomaly)
  Sender: FDA-Public Use
  Company Number: DE-GILEAD-2006-0010882

PATIENT

DRUGS (4)
  1. TRUVADA [Suspect]
     Route: 064
     Dates: end: 20060810
  2. TELZIR [Suspect]
     Route: 064
     Dates: end: 20060810
  3. NORVIR [Suspect]
     Route: 064
     Dates: end: 20060810
  4. PREDNISOLONE [Suspect]
     Route: 064
     Dates: end: 20060123

REACTIONS (4)
  - CONGENITAL ANOMALY [None]
  - DRUG EXPOSURE DURING PREGNANCY [None]
  - HYDRONEPHROSIS [None]
  - PREGNANCY [None]
